FAERS Safety Report 5091514-2 (Version None)
Quarter: 2006Q3

REPORT INFORMATION
  Report Type: 
  Country: None (occurrence: None)
  Receive Date: 20060824
  Receipt Date: 20060817
  Transmission Date: 20061208
  Serious: Yes (Hospitalization)
  Sender: FDA-Public Use
  Company Number: MEDI-0004493

PATIENT
  Age: 5 Month
  Sex: Female
  Weight: 7.76 kg

DRUGS (11)
  1. SYNAGIS [Suspect]
     Indication: ANTIVIRAL PROPHYLAXIS
     Dosage: 112 MG, 1 IN 30 D, INTRAMUSCULAR; SEE IMAGE
     Route: 030
     Dates: start: 20051007, end: 20060227
  2. SYNAGIS [Suspect]
     Dosage: 60 MG, 1 IN 30 D, INTRAMUSCULAR
     Route: 030
     Dates: start: 20051007
  3. SYNAGIS [Suspect]
     Dosage: 78 MG, 1 IN 30 D, INTRAMUSCULAR; SEE IMAGE
     Route: 030
     Dates: start: 20051111
  4. SYNAGIS [Suspect]
     Dosage: 78 MG, 1 IN 30 D, INTRAMUSCULAR; SEE IMAGE
     Route: 030
     Dates: start: 20051214
  5. SYNAGIS [Suspect]
     Dosage: 102 MG, 1 IN 30 D, INTRAMUSCULAR; SEE IMAGE
     Route: 030
     Dates: start: 20060116
  6. SYNAGIS [Suspect]
     Dosage: 102 MG, 1 IN 30 D, INTRAMUSCULAR; SEE IMAGE
     Route: 030
     Dates: start: 20060327
  7. GAVISCON (SODIUM BICARBONATE, ALUMINIUM HYDROXIDE GEL, DRIED, ALGINIC [Concomitant]
  8. ABIDEC (ERGOCALCIFEROL, ASCORBIC ACID, THIAMINE HYDROCHLORIDE, RETINOL [Concomitant]
  9. FER-IN-SOL (FERROUS SULFATE) [Concomitant]
  10. CLONAMOX (AMOXICILLIN TRIHYDRATE) [Concomitant]
  11. ALUPENT SYRUP (ORCIPRENALINE SULFATE) [Concomitant]

REACTIONS (5)
  - BRONCHIOLITIS [None]
  - COUGH [None]
  - CREPITATIONS [None]
  - UPPER RESPIRATORY TRACT INFECTION [None]
  - WHEEZING [None]
